FAERS Safety Report 11627837 (Version 1)
Quarter: 2015Q4

REPORT INFORMATION
  Report Type: Report from Study
  Country: BR (occurrence: BR)
  Receive Date: 20151014
  Receipt Date: 20151014
  Transmission Date: 20160304
  Serious: Yes (Other)
  Sender: FDA-Public Use
  Company Number: BR-ABBVIE-14K-020-1325779-00

PATIENT
  Sex: Female
  Weight: 70 kg

DRUGS (5)
  1. HUMIRA [Suspect]
     Active Substance: ADALIMUMAB
     Indication: RHEUMATOID ARTHRITIS
     Route: 058
     Dates: start: 2013
  2. HUMIRA [Suspect]
     Active Substance: ADALIMUMAB
     Indication: PSORIATIC ARTHROPATHY
     Route: 058
     Dates: start: 20121101, end: 2013
  3. METHOTREXATE [Concomitant]
     Active Substance: METHOTREXATE
     Indication: ARTHRITIS
  4. METHOTREXATE [Concomitant]
     Active Substance: METHOTREXATE
  5. FOLIC ACID. [Concomitant]
     Active Substance: FOLIC ACID
     Indication: VITAMIN SUPPLEMENTATION
     Dosage: 1 DAY BEFORE METHOTREXATE USE
     Route: 048
     Dates: start: 2011

REACTIONS (15)
  - Injection site discolouration [Unknown]
  - Injection site mass [Unknown]
  - Gait disturbance [Recovering/Resolving]
  - Drug ineffective [Unknown]
  - Pigmentation disorder [Recovered/Resolved]
  - Drug effect decreased [Unknown]
  - Blood thyroid stimulating hormone abnormal [Recovered/Resolved]
  - Memory impairment [Unknown]
  - Breast necrosis [Recovered/Resolved]
  - Inflammation [Unknown]
  - Arthralgia [Recovering/Resolving]
  - Angiopathy [Recovered/Resolved]
  - Nipple inflammation [Recovering/Resolving]
  - Injection site pruritus [Unknown]
  - Pain in extremity [Not Recovered/Not Resolved]

NARRATIVE: CASE EVENT DATE: 2013
